FAERS Safety Report 12845018 (Version 4)
Quarter: 2017Q1

REPORT INFORMATION
  Report Type: Spontaneous
  Country: AU (occurrence: AU)
  Receive Date: 20161013
  Receipt Date: 20170317
  Transmission Date: 20170428
  Serious: Yes (Hospitalization, Other)
  Sender: FDA-Public Use
  Company Number: AU-PFIZER INC-2016476149

PATIENT
  Age: 29 Year
  Sex: Female

DRUGS (15)
  1. DILANTIN [Suspect]
     Active Substance: PHENYTOIN
     Dosage: 200 MG, ALTERNATE DAY (VIA PEG)
  2. KEPPRA [Suspect]
     Active Substance: LEVETIRACETAM
     Indication: EPILEPSY
     Dosage: 2 G MORNING, 1.5 G NIGHT
  3. LAMICTAL [Suspect]
     Active Substance: LAMOTRIGINE
     Indication: EPILEPSY
     Dosage: 200 MG, 2X/DAY
  4. HIPREX [Concomitant]
     Active Substance: METHENAMINE HIPPURATE
     Dosage: UNK
     Dates: start: 2009
  5. KEPPRA [Suspect]
     Active Substance: LEVETIRACETAM
     Dosage: 2 G, 2X/DAY
  6. VALIUM [Suspect]
     Active Substance: DIAZEPAM
     Indication: GENERALISED TONIC-CLONIC SEIZURE
     Dosage: UP TO 10MG
  7. DULCOLAX (BISACODYL) [Concomitant]
     Active Substance: BISACODYL
     Dosage: UNK
     Dates: start: 2010
  8. DILANTIN [Suspect]
     Active Substance: PHENYTOIN
     Dosage: 390 MG, DAILY (VIA PEG)
  9. LOSEC [Concomitant]
     Active Substance: OMEPRAZOLE
     Dosage: UNK
  10. TEGRETOL [Suspect]
     Active Substance: CARBAMAZEPINE
     Indication: EPILEPSY
     Dosage: 400 MG, 2X/DAY
  11. VALIUM [Suspect]
     Active Substance: DIAZEPAM
     Indication: PARTIAL SEIZURES
  12. VITAMIN D [Concomitant]
     Active Substance: CHOLECALCIFEROL
     Dosage: UNK
  13. DILANTIN [Suspect]
     Active Substance: PHENYTOIN
     Indication: EPILEPSY
     Dosage: 300 MG, ALTERNATE DAY (VIA PEG)
  14. BENEFIBER /00677201/ [Concomitant]
     Active Substance: ICODEXTRIN
     Dosage: UNK
     Dates: start: 2010
  15. VITAMIN C [Concomitant]
     Active Substance: ASCORBIC ACID
     Dosage: UNK

REACTIONS (3)
  - Partial seizures [Not Recovered/Not Resolved]
  - Anticonvulsant drug level below therapeutic [Recovered/Resolved]
  - Drug intolerance [Unknown]

NARRATIVE: CASE EVENT DATE: 2016
